FAERS Safety Report 16469226 (Version 1)
Quarter: 2019Q2

REPORT INFORMATION
  Report Type: Spontaneous
  Country: US (occurrence: US)
  Receive Date: 20190514
  Receipt Date: 20190514
  Transmission Date: 20190711
  Serious: No
  Sender: FDA-Public Use
  Company Number: None

PATIENT
  Age: 54 Year
  Sex: Female

DRUGS (8)
  1. FOLIC ACID. [Concomitant]
     Active Substance: FOLIC ACID
  2. SULFASALAZINE DELAYED-RELEASE [Concomitant]
     Active Substance: SULFASALAZINE
  3. HUMIRA [Suspect]
     Active Substance: ADALIMUMAB
     Indication: RHEUMATOID ARTHRITIS
     Dates: start: 20171125
  4. CALTRATE [Concomitant]
     Active Substance: CALCIUM CARBONATE
  5. METHOTREXATE. [Concomitant]
     Active Substance: METHOTREXATE
  6. JOLESSA [Concomitant]
     Active Substance: ETHINYL ESTRADIOL\LEVONORGESTREL
  7. PLAQUENIL [Concomitant]
     Active Substance: HYDROXYCHLOROQUINE SULFATE
  8. CYCLOBENAPR [Concomitant]

REACTIONS (2)
  - Surgery [None]
  - Therapy cessation [None]

NARRATIVE: CASE EVENT DATE: 20190413
